FAERS Safety Report 9857396 (Version 4)
Quarter: 2014Q1

REPORT INFORMATION
  Report Type: Report from Study
  Country: CA (occurrence: CA)
  Receive Date: 20140131
  Receipt Date: 20140319
  Transmission Date: 20141002
  Serious: Yes (Other)
  Sender: FDA-Public Use
  Company Number: CA-ROCHE-1188517

PATIENT
  Sex: Female
  Weight: 82 kg

DRUGS (4)
  1. ACTEMRA [Suspect]
     Indication: RHEUMATOID ARTHRITIS
     Route: 042
     Dates: start: 20121101, end: 20140104
  2. ACTEMRA [Suspect]
     Route: 042
     Dates: start: 20131022
  3. PREDNISONE [Concomitant]
  4. DICLOFENAC [Concomitant]

REACTIONS (3)
  - Abortion spontaneous [Unknown]
  - Exposure during pregnancy [Unknown]
  - Weight increased [Not Recovered/Not Resolved]
